FAERS Safety Report 25167372 (Version 1)
Quarter: 2025Q2

REPORT INFORMATION
  Report Type: Spontaneous
  Country: US (occurrence: None)
  Receive Date: 20250404
  Receipt Date: 20250404
  Transmission Date: 20250716
  Serious: Yes (Other)
  Sender: FDA-CTU
  Company Number: None

PATIENT
  Sex: Female

DRUGS (12)
  1. PROMACTA [Suspect]
     Active Substance: ELTROMBOPAG OLAMINE
     Indication: Blood disorder
     Dosage: TAKE 1 TABLET (25 MG) BY MOUTH ONCE DAILY
     Route: 048
     Dates: start: 20200527
  2. PROMACTA [Suspect]
     Active Substance: ELTROMBOPAG OLAMINE
     Indication: Immune system disorder
  3. AMLODIPINE [Concomitant]
     Active Substance: AMLODIPINE BESYLATE
  4. CALTRATE WITH VITAMIN D [Concomitant]
     Active Substance: CALCIUM CARBONATE\CHOLECALCIFEROL
  5. CELEBREX [Concomitant]
     Active Substance: CELECOXIB
  6. CYMBALTA [Concomitant]
     Active Substance: DULOXETINE HYDROCHLORIDE
  7. DEXILANT [Concomitant]
     Active Substance: DEXLANSOPRAZOLE
  8. GEMTESA [Concomitant]
     Active Substance: VIBEGRON
  9. JANUVIA [Concomitant]
     Active Substance: SITAGLIPTIN PHOSPHATE
  10. LOPRESSOR [Concomitant]
     Active Substance: METOPROLOL TARTRATE
  11. METFORMIN [Concomitant]
     Active Substance: METFORMIN HYDROCHLORIDE
  12. TIZANIDINE HYDROCHLORIDE [Concomitant]
     Active Substance: TIZANIDINE HYDROCHLORIDE

REACTIONS (2)
  - Surgery [None]
  - Intentional dose omission [None]
